FAERS Safety Report 6569103-X (Version None)
Quarter: 2010Q1

REPORT INFORMATION
  Report Type: 
  Country: None (occurrence: None)
  Receive Date: 20100203
  Receipt Date: 20100125
  Transmission Date: 20100710
  Serious: Yes (Hospitalization)
  Sender: FDA-Public Use
  Company Number: CA-ABBOTT-10P-028-0622161-00

PATIENT
  Sex: Male
  Weight: 87.168 kg

DRUGS (11)
  1. HUMIRA [Suspect]
     Indication: CROHN'S DISEASE
     Dosage: 160 MG LOADING DOSE
     Route: 058
  2. HUMIRA [Suspect]
     Dosage: 80 MG LOADING DOSE
     Route: 058
     Dates: start: 20100119
  3. NITRO-DUR [Concomitant]
     Indication: DRUG USE FOR UNKNOWN INDICATION
     Dosage: 1 PATCH AT BEDTIME
     Route: 062
  4. PLAVIX [Concomitant]
     Indication: DRUG USE FOR UNKNOWN INDICATION
     Dosage: IN THE MORNING
  5. RYTHMOL [Concomitant]
     Indication: DRUG USE FOR UNKNOWN INDICATION
     Dosage: 1 TABLET IN THE MORNING AND AT DINNER AND 1/2 TABLET AT LUNCH
     Route: 048
  6. APO-BISOPROLOL [Concomitant]
     Indication: DRUG USE FOR UNKNOWN INDICATION
     Dosage: 1/2 TABLET EACH MORNING
  7. CRESTOR [Concomitant]
     Indication: DRUG USE FOR UNKNOWN INDICATION
     Dosage: DAILY
  8. PURINETHOL [Concomitant]
     Indication: DRUG USE FOR UNKNOWN INDICATION
     Dosage: AT LUNCH
  9. CALCIUM AND VIT D 400 IU [Concomitant]
     Indication: DRUG USE FOR UNKNOWN INDICATION
     Dosage: ONE DAILY
  10. CREON [Concomitant]
     Indication: DRUG USE FOR UNKNOWN INDICATION
     Dosage: 25 MG WITH EACH MEAL
  11. PANTOPRAZOLE [Concomitant]
     Indication: DRUG USE FOR UNKNOWN INDICATION
     Dosage: ONE DAILY

REACTIONS (4)
  - DIARRHOEA [None]
  - FATIGUE [None]
  - HAEMATOCHEZIA [None]
  - PAIN [None]
